FAERS Safety Report 25960214 (Version 1)
Quarter: 2025Q4

REPORT INFORMATION
  Report Type: Spontaneous
  Country: US (occurrence: US)
  Receive Date: 20251026
  Receipt Date: 20251026
  Transmission Date: 20260117
  Serious: Yes (Hospitalization)
  Sender: ABBVIE
  Company Number: US-ABBVIE-6511983

PATIENT
  Age: 24 Year
  Sex: Male
  Weight: 79.378 kg

DRUGS (4)
  1. SKYRIZI [Suspect]
     Active Substance: RISANKIZUMAB-RZAA
     Indication: Crohn^s disease
     Dosage: FORM STRENGTH: 600 MILLIGRAM
     Route: 042
     Dates: start: 202505
  2. BENTYL [Concomitant]
     Active Substance: DICYCLOMINE HYDROCHLORIDE
     Indication: Abdominal pain upper
  3. GABAPENTIN [Concomitant]
     Active Substance: GABAPENTIN
     Indication: Depression
  4. AMJEVITA [Concomitant]
     Active Substance: ADALIMUMAB-ATTO
     Indication: Crohn^s disease

REACTIONS (7)
  - Suicidal ideation [Recovered/Resolved]
  - Inflammatory marker increased [Recovering/Resolving]
  - Pain [Recovering/Resolving]
  - Anal fistula [Not Recovered/Not Resolved]
  - Faecal calprotectin increased [Not Recovered/Not Resolved]
  - Drainage [Recovering/Resolving]
  - Feeling of despair [Unknown]

NARRATIVE: CASE EVENT DATE: 20250101
